FAERS Safety Report 5674261-5 (Version None)
Quarter: 2008Q1

REPORT INFORMATION
  Report Type: 
  Country: None (occurrence: None)
  Receive Date: 20080320
  Receipt Date: 20080310
  Transmission Date: 20080703
  Serious: Yes (Hospitalization)
  Sender: FDA-Public Use
  Company Number: US-AMGEN-US219176

PATIENT
  Sex: Male
  Weight: 65.4 kg

DRUGS (6)
  1. PANITUMUMAB [Suspect]
     Indication: COLORECTAL CANCER
     Route: 042
     Dates: start: 20070306, end: 20070306
  2. IRINOTECAN HCL [Suspect]
     Indication: COLORECTAL CANCER
     Route: 042
     Dates: start: 20070306, end: 20070402
  3. LORAZEPAM [Concomitant]
     Route: 065
  4. LOMOTIL [Concomitant]
     Route: 048
  5. IMODIUM [Concomitant]
     Route: 065
  6. DOXYCYCLINE [Concomitant]
     Route: 048

REACTIONS (1)
  - DEHYDRATION [None]
